FAERS Safety Report 13817073 (Version 1)
Quarter: 2017Q3

REPORT INFORMATION
  Report Type: Spontaneous
  Country: CN (occurrence: CN)
  Receive Date: 20170731
  Receipt Date: 20170731
  Transmission Date: 20171127
  Serious: Yes (Hospitalization, Other)
  Sender: FDA-Public Use
  Company Number: CN-BAYER-2017-139314

PATIENT
  Age: 25 Year
  Sex: Male
  Weight: 72 kg

DRUGS (1)
  1. NEXAVAR [Suspect]
     Active Substance: SORAFENIB
     Indication: HEPATOCELLULAR CARCINOMA
     Dosage: 400 MG, UNK
     Route: 048
     Dates: start: 201511, end: 201702

REACTIONS (7)
  - Lung cancer metastatic [None]
  - Hepatocellular carcinoma [None]
  - Metastases to abdominal cavity [None]
  - Abdominal pain [None]
  - Hepatic cancer [None]
  - Abdominal distension [None]
  - Metastases to pelvis [None]

NARRATIVE: CASE EVENT DATE: 20160930
